FAERS Safety Report 9215010 (Version 2)
Quarter: 2013Q4

REPORT INFORMATION
  Report Type: Spontaneous
  Country: GB (occurrence: GB)
  Receive Date: 20130405
  Receipt Date: 20131011
  Transmission Date: 20140711
  Serious: Yes (Other)
  Sender: FDA-Public Use
  Company Number: PHHY2013GB032198

PATIENT
  Age: 58 Year
  Sex: Female
  Weight: 104 kg

DRUGS (8)
  1. CITALOPRAM [Suspect]
     Indication: DEPRESSION
     Dosage: 10 MG
     Route: 048
     Dates: end: 20130324
  2. KEPPRA [Suspect]
     Indication: EPILEPSY
  3. LEVOTHYROXINE [Concomitant]
  4. METFORMIN [Concomitant]
  5. LAMOTRIGINE [Concomitant]
  6. CARBAMAZEPINE [Concomitant]
  7. CYANOCOBALAMIN [Concomitant]
  8. ATORVASTATIN [Concomitant]

REACTIONS (8)
  - Abdominal pain upper [Unknown]
  - Thyroid function test abnormal [Unknown]
  - Blood cholesterol increased [Unknown]
  - Abnormal dreams [Unknown]
  - Headache [Unknown]
  - Epileptic aura [Unknown]
  - Epilepsy [Not Recovered/Not Resolved]
  - Dizziness [Unknown]
